FAERS Safety Report 7244283-1 (Version None)
Quarter: 2011Q1

REPORT INFORMATION
  Report Type: 
  Country: None (occurrence: None)
  Receive Date: 20110125
  Receipt Date: 20110117
  Transmission Date: 20110831
  Serious: Yes (Hospitalization)
  Sender: FDA-Public Use
  Company Number: CA-JNJFOC-20100604548

PATIENT
  Sex: Male
  Weight: 92.5 kg

DRUGS (7)
  1. REMICADE [Suspect]
     Indication: CROHN'S DISEASE
     Dosage: 24 INFUSIONS ON UNSPECIFIED DATES
     Route: 042
  2. REMICADE [Suspect]
     Route: 042
  3. REMICADE [Suspect]
     Route: 042
  4. REMICADE [Suspect]
     Route: 042
  5. NEXIUM [Concomitant]
     Indication: GASTRIC DISORDER
  6. CALCIUM AND VITAMIN D [Concomitant]
  7. VITAMIN B-12 [Concomitant]
     Route: 050

REACTIONS (2)
  - SUBCUTANEOUS ABSCESS [None]
  - TONSILLECTOMY [None]
